FAERS Safety Report 6565851-6 (Version None)
Quarter: 2010Q1

REPORT INFORMATION
  Report Type: 
  Country: None (occurrence: None)
  Receive Date: 20100201
  Receipt Date: 20100127
  Transmission Date: 20100710
  Serious: Yes (Other)
  Sender: FDA-Public Use
  Company Number: US-GILEAD-2010-0026326

PATIENT
  Sex: Female
  Weight: 79.45 kg

DRUGS (16)
  1. LETAIRIS [Suspect]
     Indication: PULMONARY ARTERIAL HYPERTENSION
     Route: 048
     Dates: start: 20091009, end: 20100105
  2. SINGULAIR [Concomitant]
  3. ZOCOR [Concomitant]
  4. MIRAPEX [Concomitant]
  5. TRICOR [Concomitant]
  6. LISINOPRIL [Concomitant]
  7. PULMICORT [Concomitant]
  8. NEXIUM [Concomitant]
  9. METOPROLOL TARTRATE [Concomitant]
  10. SPIRIVA [Concomitant]
  11. CALCIUM + D [Concomitant]
  12. GLUMETZA ER [Concomitant]
  13. ACTOS [Concomitant]
  14. PLAVIX [Concomitant]
  15. LOVAZA [Concomitant]
  16. ASPIRIN [Concomitant]

REACTIONS (1)
  - RENAL FAILURE CHRONIC [None]
